FAERS Safety Report 15839379 (Version 5)
Quarter: 2021Q1

REPORT INFORMATION
  Report Type: Report from Study
  Country: CA (occurrence: CA)
  Receive Date: 20190117
  Receipt Date: 20210118
  Transmission Date: 20210419
  Serious: Yes (Other)
  Sender: FDA-Public Use
  Company Number: CA-GLAXOSMITHKLINE-CA2018GSK148428

PATIENT
  Age: 61 Year
  Sex: Male

DRUGS (3)
  1. MEPOLIZUMAB [Suspect]
     Active Substance: MEPOLIZUMAB
     Dosage: 100 MG, Z (MONTHLY)
     Route: 042
  2. MEPOLIZUMAB [Suspect]
     Active Substance: MEPOLIZUMAB
     Dosage: 100 MG, Z (MONYHLY)
     Route: 042
  3. MEPOLIZUMAB [Suspect]
     Active Substance: MEPOLIZUMAB
     Indication: ASTHMA
     Dosage: 100 MG, Z(MONTHLY)
     Route: 042
     Dates: start: 20180216

REACTIONS (8)
  - Asthma [Recovered/Resolved]
  - Dry mouth [Unknown]
  - Wheezing [Recovered/Resolved]
  - Loss of personal independence in daily activities [Unknown]
  - Diabetes mellitus [Unknown]
  - Blood count abnormal [Unknown]
  - Sleep disorder due to a general medical condition [Unknown]
  - Dyspnoea [Recovered/Resolved]

NARRATIVE: CASE EVENT DATE: 201812
